FAERS Safety Report 8364584-3 (Version None)
Quarter: 2012Q2

REPORT INFORMATION
  Report Type: 
  Country: None (occurrence: None)
  Receive Date: 20120516
  Receipt Date: 20120507
  Transmission Date: 20120825
  Serious: Yes (Life-Threatening, Hospitalization)
  Sender: FDA-Public Use
  Company Number: US-ROCHE-1002335

PATIENT
  Sex: Female

DRUGS (6)
  1. EPIRUBICIN HYDROCHLORIDE [Suspect]
     Indication: BREAST CANCER
     Dosage: OVER 15 MINS ON DAY 1
     Route: 042
     Dates: start: 20091110, end: 20101005
  2. PACLITAXEL [Suspect]
     Indication: BREAST CANCER
     Dosage: OVER 60 MINS WEEKLY
     Route: 042
     Dates: start: 20091110, end: 20101005
  3. HERCEPTIN [Suspect]
     Dosage: THEN 2 MG/KG OVER 30 MINS FOR 11 WEEKS
     Route: 042
     Dates: end: 20101005
  4. FLUOROURACIL [Suspect]
     Indication: BREAST CANCER
     Dosage: ON DAY 1
     Route: 042
     Dates: start: 20091110, end: 20101005
  5. HERCEPTIN [Suspect]
     Indication: BREAST CANCER
     Dosage: OVER 90 MINS WEEK 1,
     Route: 042
     Dates: start: 20091110
  6. CYCLOPHOSPHAMIDE [Suspect]
     Indication: BREAST CANCER
     Dosage: OVER 30 MINS ON DAY 1
     Route: 042
     Dates: start: 20091110, end: 20101005

REACTIONS (13)
  - DIARRHOEA [None]
  - SKIN INFECTION [None]
  - VOMITING [None]
  - ALANINE AMINOTRANSFERASE INCREASED [None]
  - ANAEMIA [None]
  - SEROMA [None]
  - NON-CARDIAC CHEST PAIN [None]
  - OEDEMA PERIPHERAL [None]
  - EMBOLISM [None]
  - PYREXIA [None]
  - NAUSEA [None]
  - ABDOMINAL PAIN [None]
  - ASPARTATE AMINOTRANSFERASE INCREASED [None]
